FAERS Safety Report 11233269 (Version 4)
Quarter: 2016Q1

REPORT INFORMATION
  Report Type: Report from Study
  Country: AU (occurrence: AU)
  Receive Date: 20150701
  Receipt Date: 20160222
  Transmission Date: 20160525
  Serious: Yes (Hospitalization, Other)
  Sender: FDA-Public Use
  Company Number: AU-ROCHE-1576522

PATIENT
  Age: 78 Year
  Sex: Male
  Weight: 89 kg

DRUGS (11)
  1. ACTEMRA [Suspect]
     Active Substance: TOCILIZUMAB
     Route: 042
     Dates: start: 20120410, end: 201501
  2. VITAMIN B12 [Concomitant]
     Active Substance: CYANOCOBALAMIN
  3. TAMSULOSIN [Concomitant]
     Active Substance: TAMSULOSIN
     Indication: BENIGN PROSTATIC HYPERPLASIA
     Dosage: OCT/NOV-2014
     Route: 048
     Dates: start: 2014
  4. PLAVIX [Concomitant]
     Active Substance: CLOPIDOGREL BISULFATE
     Indication: THROMBOLYSIS
     Dosage: ONGOING
     Route: 048
  5. CLEXANE [Concomitant]
     Active Substance: ENOXAPARIN SODIUM
  6. ACTEMRA [Suspect]
     Active Substance: TOCILIZUMAB
     Indication: RHEUMATOID ARTHRITIS
     Dosage: THERAPY ON HOLD
     Route: 042
     Dates: start: 20100622
  7. KARVEA [Concomitant]
     Active Substance: IRBESARTAN
     Route: 048
     Dates: end: 201509
  8. TAMSULOSIN [Concomitant]
     Active Substance: TAMSULOSIN
     Route: 048
  9. PLAQUENIL [Concomitant]
     Active Substance: HYDROXYCHLOROQUINE SULFATE
     Indication: RHEUMATOID ARTHRITIS
     Dosage: ONGOING
     Route: 048
  10. KARVEA [Concomitant]
     Active Substance: IRBESARTAN
     Indication: HYPERTENSION
     Dosage: 1 YEAR AGO
     Route: 048
     Dates: end: 201509
  11. VERACAPS [Concomitant]
     Indication: HYPERTENSION
     Dosage: 1 YEAR AGO
     Route: 048
     Dates: end: 201509

REACTIONS (12)
  - Thrombocytopenia [Recovered/Resolved]
  - Bradycardia [Unknown]
  - Gallbladder obstruction [Recovered/Resolved]
  - Sepsis [Unknown]
  - Neutropenia [Recovered/Resolved]
  - Leukopenia [Recovered/Resolved]
  - Platelet count decreased [Unknown]
  - Splenomegaly [Unknown]
  - Enteritis infectious [Unknown]
  - Cholecystitis [Recovered/Resolved]
  - Hepatic steatosis [Unknown]
  - Diastolic dysfunction [Unknown]

NARRATIVE: CASE EVENT DATE: 20140616
